FAERS Safety Report 7716598-1 (Version None)
Quarter: 2011Q3

REPORT INFORMATION
  Report Type: 
  Country: None (occurrence: None)
  Receive Date: 20110829
  Receipt Date: 20110823
  Transmission Date: 20111222
  Serious: Yes (Hospitalization)
  Sender: FDA-Public Use
  Company Number: FR-ROXANE LABORATORIES, INC.-2011-RO-01181RO

PATIENT
  Age: 83 Year
  Sex: Female

DRUGS (5)
  1. AMIODARONE HCL [Suspect]
  2. CITALOPRAM [Suspect]
  3. FLUINDIONE [Suspect]
  4. LERCANIDIPINE [Suspect]
  5. LOSARTAN POTASSIUM [Suspect]

REACTIONS (2)
  - HYPOKALAEMIA [None]
  - TORSADE DE POINTES [None]
